FAERS Safety Report 9066969 (Version 1)
Quarter: 2013Q1

REPORT INFORMATION
  Report Type: Report from Study
  Country: US (occurrence: US)
  Receive Date: 20130131
  Receipt Date: 20130131
  Transmission Date: 20140127
  Serious: No
  Sender: FDA-Public Use
  Company Number: US-ABBOTT-12P-163-0976126-00

PATIENT
  Age: 50 Year
  Sex: Female
  Weight: 55.39 kg

DRUGS (10)
  1. HUMIRA [Suspect]
     Indication: RHEUMATOID ARTHRITIS
     Route: 058
     Dates: start: 201204, end: 201206
  2. CELEBREX [Suspect]
     Indication: RHEUMATOID ARTHRITIS
     Dates: start: 20120606, end: 20120616
  3. METHOTREXATE [Concomitant]
     Indication: RHEUMATOID ARTHRITIS
  4. SERTRALINE [Concomitant]
     Indication: ANXIETY
  5. HYDROCODONE [Concomitant]
     Indication: PAIN
  6. TYLENOL PM [Concomitant]
     Indication: INSOMNIA
  7. FOLIC ACID [Concomitant]
     Indication: POLYMEDICATION
  8. NEXIUM [Concomitant]
     Indication: ULCER
  9. IBUPROFEN [Concomitant]
     Indication: INFLAMMATION
  10. IBUPROFEN [Concomitant]
     Indication: PAIN

REACTIONS (3)
  - Rash [Recovered/Resolved]
  - Eye pain [Recovered/Resolved]
  - Drug eruption [Recovered/Resolved]
